FAERS Safety Report 10077318 (Version 2)
Quarter: 2014Q2

REPORT INFORMATION
  Report Type: Spontaneous
  Country: US (occurrence: US)
  Receive Date: 20140414
  Receipt Date: 20140414
  Transmission Date: 20141212
  Serious: No
  Sender: FDA-Public Use
  Company Number: US-BANPHARM-20131302

PATIENT
  Age: 85 Year
  Sex: Male
  Weight: 72.57 kg

DRUGS (2)
  1. ALEVE LIQUID GELS 220 MG [Suspect]
     Dosage: 1 DF, QD,
     Route: 048
     Dates: start: 20130501, end: 20130502
  2. LISINOPRIL [Concomitant]

REACTIONS (2)
  - Blood pressure decreased [Recovered/Resolved]
  - Asthenia [Recovered/Resolved]
